FAERS Safety Report 4270341-X (Version None)
Quarter: 2004Q1

REPORT INFORMATION
  Report Type: 
  Country: None (occurrence: None)
  Receive Date: 20040114
  Receipt Date: 20040107
  Transmission Date: 20041129
  Serious: Yes (Hospitalization)
  Sender: FDA-Public Use
  Company Number: 200410057FR

PATIENT
  Age: 79 Year
  Sex: Female

DRUGS (4)
  1. LOVENOX [Suspect]
     Indication: THROMBOSIS PROPHYLAXIS
     Route: 058
     Dates: start: 20030903, end: 20030911
  2. ALDACTAZINE [Suspect]
     Dosage: DOSE UNIT: UNITS
     Route: 048
     Dates: end: 20030911
  3. RIVOTRIL [Suspect]
     Route: 048
     Dates: end: 20030911
  4. PENTASA [Suspect]
     Route: 048
     Dates: start: 20030715, end: 20030911

REACTIONS (1)
  - AGRANULOCYTOSIS [None]
